FAERS Safety Report 26081655 (Version 1)
Quarter: 2025Q4

REPORT INFORMATION
  Report Type: Other
  Country: IR (occurrence: IR)
  Receive Date: 20251124
  Receipt Date: 20251124
  Transmission Date: 20260118
  Serious: Yes (Hospitalization, Other)
  Sender: NOVITIUM PHARMA
  Company Number: IR-NOVITIUM PHARMA-000308

PATIENT
  Age: 52 Year
  Sex: Male

DRUGS (10)
  1. DEXAMETHASONE [Suspect]
     Active Substance: DEXAMETHASONE
     Indication: COVID-19
     Dosage: 2 MG/8 ML, 30 AMPOULE
  2. AZITHROMYCIN [Concomitant]
     Active Substance: AZITHROMYCIN
     Indication: COVID-19
     Route: 048
  3. CEFTRIAXONE [Concomitant]
     Active Substance: CEFTRIAXONE
     Indication: COVID-19
     Dosage: VIAL
  4. CEFEPIME [Concomitant]
     Active Substance: CEFEPIME HYDROCHLORIDE
     Indication: COVID-19
  5. LEVOFLOXACIN [Concomitant]
     Active Substance: LEVOFLOXACIN
     Indication: COVID-19
     Dosage: 500 MG/20 ML, 2-IM
     Route: 030
  6. REMDESIVIR [Concomitant]
     Active Substance: REMDESIVIR
     Indication: COVID-19
     Dosage: 1 MG/5 ML, 7
  7. ADALIMUMAB [Concomitant]
     Active Substance: ADALIMUMAB
     Indication: COVID-19
     Dosage: 0.8 MG/40 ML, 2
  8. TOCILIZUMAB [Concomitant]
     Active Substance: TOCILIZUMAB
     Indication: COVID-19
     Dosage: 0.9 MG/200 ML, 2 VIAL
  9. AMINOPHYLLINE [Concomitant]
     Active Substance: AMINOPHYLLINE
     Indication: COVID-19
     Dosage: 10 MG/250 ML, 2 AMPOULE
  10. PIROXICAM [Concomitant]
     Active Substance: PIROXICAM
     Indication: COVID-19
     Dosage: 1 MG/20 ML, 7 AMPOULE

REACTIONS (1)
  - Mucormycosis [Unknown]
